FAERS Safety Report 9122752 (Version 1)
Quarter: 2013Q1

REPORT INFORMATION
  Report Type: Spontaneous
  Country: FI (occurrence: FI)
  Receive Date: 20130115
  Receipt Date: 20130115
  Transmission Date: 20140127
  Serious: Yes (Hospitalization)
  Sender: FDA-Public Use
  Company Number: FI-ROCHE-1179880

PATIENT
  Age: 16 Year
  Sex: Male

DRUGS (2)
  1. ZELBORAF [Suspect]
     Indication: MALIGNANT MELANOMA
     Route: 048
     Dates: start: 20121219
  2. ZELBORAF [Suspect]
     Route: 048
     Dates: start: 20130107

REACTIONS (2)
  - Infection [Recovered/Resolved]
  - Rash erythematous [Recovered/Resolved]
